FAERS Safety Report 9253979 (Version 1)
Quarter: 2013Q1

REPORT INFORMATION
  Report Type: Spontaneous
  Country: US (occurrence: None)
  Receive Date: 20121203
  Receipt Date: 20121203
  Transmission Date: 20140127
  Serious: Yes (Disabling)
  Sender: FDA-Public Use
  Company Number: 2011SP058223

PATIENT
  Age: 26 Year
  Sex: Female
  Weight: 52.6 kg

DRUGS (1)
  1. NUVARING [Suspect]
     Indication: CONTRACEPTION
     Dates: start: 20051201, end: 200605

REACTIONS (9)
  - Deep vein thrombosis [None]
  - Hypercoagulation [None]
  - Venous insufficiency [None]
  - Pyelonephritis [None]
  - Tooth abscess [None]
  - Urinary tract infection [None]
  - Depression [None]
  - Vaginitis bacterial [None]
  - Pain [None]
